FAERS Safety Report 4682108-9 (Version None)
Quarter: 2005Q2

REPORT INFORMATION
  Report Type: 
  Country: None (occurrence: None)
  Receive Date: 20050531
  Receipt Date: 20050127
  Transmission Date: 20051028
  Serious: Yes (Disabling)
  Sender: FDA-Public Use
  Company Number: WAES 0501USA04239

PATIENT
  Age: 43 Year
  Sex: Female
  Weight: 88.4514 kg

DRUGS (7)
  1. ZETIA [Suspect]
     Indication: HYPERLIPIDAEMIA
     Dosage: 10 MG/DAILY/PO
     Route: 048
     Dates: start: 20041210, end: 20041201
  2. ZETIA [Suspect]
     Indication: HYPERLIPIDAEMIA
     Dosage: 10 MG/DAILY/PO
     Route: 048
     Dates: start: 20041201, end: 20050107
  3. ADVIL [Concomitant]
  4. LEXAPRO [Concomitant]
  5. SINGULAIR [Concomitant]
  6. TYLENOL (CAPLET) [Concomitant]
  7. DIMENHYDRINATE [Concomitant]

REACTIONS (1)
  - HEADACHE [None]
